FAERS Safety Report 23198644 (Version 3)
Quarter: 2023Q4

REPORT INFORMATION
  Report Type: Report from Study
  Country: NL (occurrence: NL)
  Receive Date: 20231117
  Receipt Date: 20231201
  Transmission Date: 20240109
  Serious: Yes (Other)
  Sender: FDA-Public Use
  Company Number: NL-VER-202300086

PATIENT
  Age: 72 Year
  Sex: Male

DRUGS (4)
  1. TRIPTORELIN PAMOATE [Suspect]
     Active Substance: TRIPTORELIN PAMOATE
     Indication: Prostate cancer
     Dosage: ??22.5 MG, 1X 6 MONTHS
     Route: 030
     Dates: start: 20231031, end: 20231031
  2. TRIPTORELIN PAMOATE [Suspect]
     Active Substance: TRIPTORELIN PAMOATE
     Indication: Prostate cancer
     Dosage: 22.5 MG, 1X 6 MONTHS,
     Route: 030
     Dates: start: 20211006, end: 20211006
  3. TRIPTORELIN PAMOATE [Suspect]
     Active Substance: TRIPTORELIN PAMOATE
     Indication: Prostate cancer
     Dosage: 22.5 MG, 1X 6 MONTHS,
     Route: 030
     Dates: start: 20230502, end: 20230502
  4. TRIPTORELIN PAMOATE [Suspect]
     Active Substance: TRIPTORELIN PAMOATE
     Indication: Prostate cancer
     Dosage: ??22.5 MG, 1X 6 MONTHS,
     Route: 030
     Dates: start: 20231110, end: 20231110

REACTIONS (4)
  - Metastasis [Unknown]
  - Contusion [Recovering/Resolving]
  - Fall [Unknown]
  - Prostatic specific antigen increased [Unknown]
